FAERS Safety Report 9382211 (Version 1)
Quarter: 2013Q3

REPORT INFORMATION
  Report Type: Spontaneous
  Country: US (occurrence: US)
  Receive Date: 20130703
  Receipt Date: 20130703
  Transmission Date: 20140515
  Serious: No
  Sender: FDA-Public Use
  Company Number: US-BAYER-2013-081524

PATIENT
  Age: 82 Year
  Sex: Female
  Weight: 68.03 kg

DRUGS (6)
  1. ALEVE CAPLET [Suspect]
     Indication: ANALGESIC THERAPY
     Dosage: 1 DF, BID
     Route: 048
     Dates: start: 20130626, end: 20130626
  2. ALEVE CAPLET [Suspect]
     Indication: ARTHRALGIA
  3. ONE A DAY WOMEN^S [Concomitant]
  4. METOPROLOL [Concomitant]
  5. LOSARTAN [Concomitant]
  6. LEVOTHYROXIN [Concomitant]

REACTIONS (1)
  - Asthenia [Not Recovered/Not Resolved]
